FAERS Safety Report 4712219-0 (Version None)
Quarter: 2005Q3

REPORT INFORMATION
  Report Type: 
  Country: None (occurrence: None)
  Receive Date: 20050712
  Receipt Date: 20050620
  Transmission Date: 20060218
  Serious: Yes (Other)
  Sender: FDA-Public Use
  Company Number: PHFR2005GB02223

PATIENT
  Age: 27 Year
  Sex: Male

DRUGS (4)
  1. CLOZARIL [Suspect]
     Indication: SCHIZOPHRENIA
     Dosage: 12.5MG PER DAY
     Route: 048
     Dates: start: 20050526
  2. AMISULPRIDE [Concomitant]
     Dosage: 400MG PER DAY
     Route: 048
  3. ZOPICLONE [Concomitant]
     Dosage: 7.5MG PER DAY
     Route: 048
  4. MIRTAZAPINE [Concomitant]
     Dosage: 30MG PER DAY
     Route: 048

REACTIONS (1)
  - MEAN CELL VOLUME ABNORMAL [None]
